FAERS Safety Report 18922534 (Version 2)
Quarter: 2021Q1

REPORT INFORMATION
  Report Type: Spontaneous
  Country: US (occurrence: US)
  Receive Date: 20210222
  Receipt Date: 20210226
  Transmission Date: 20210420
  Serious: Yes (Hospitalization)
  Sender: FDA-Public Use
  Company Number: US-MYLANLABS-2021M1010489

PATIENT
  Age: 2 Year
  Sex: Female

DRUGS (3)
  1. LEVETIRACETAM. [Suspect]
     Active Substance: LEVETIRACETAM
     Dosage: 50 MILLIGRAM/KILOGRAM, QD
     Route: 065
  2. LEVETIRACETAM. [Suspect]
     Active Substance: LEVETIRACETAM
     Indication: SEIZURE
     Dosage: 27 MILLIGRAM/KILOGRAM, QD
     Route: 065
  3. LEVETIRACETAM. [Suspect]
     Active Substance: LEVETIRACETAM
     Dosage: 100 MILLIGRAM/KILOGRAM, QD
     Route: 065

REACTIONS (4)
  - Seizure [Recovered/Resolved]
  - Status epilepticus [Recovered/Resolved]
  - Paradoxical drug reaction [Recovered/Resolved]
  - Condition aggravated [Recovered/Resolved]
